FAERS Safety Report 4752431-8 (Version None)
Quarter: 2005Q3

REPORT INFORMATION
  Report Type: 
  Country: None (occurrence: None)
  Receive Date: 20050823
  Receipt Date: 20050810
  Transmission Date: 20060218
  Serious: Yes (Death, Hospitalization)
  Sender: FDA-Public Use
  Company Number: WAES 0508USA00063

PATIENT
  Age: 89 Year
  Sex: Female

DRUGS (8)
  1. COZAAR [Suspect]
     Indication: HYPERTENSION
     Dosage: 50 MG DAILY PO; 100 MG DAILY PO
     Route: 048
     Dates: start: 20020501, end: 20041019
  2. COZAAR [Suspect]
     Indication: HYPERTENSION
     Dosage: 50 MG DAILY PO; 100 MG DAILY PO
     Route: 048
     Dates: start: 20041020, end: 20050102
  3. ASPIRIN [Concomitant]
  4. CONAN [Concomitant]
  5. DIBETOS [Concomitant]
  6. TORSEMIDE [Concomitant]
  7. BETAXOLOL HCL [Concomitant]
  8. NIFEDIPINE [Concomitant]

REACTIONS (3)
  - ANGINA PECTORIS [None]
  - CARDIAC FAILURE [None]
  - ELECTROCARDIOGRAM ST SEGMENT DEPRESSION [None]
